FAERS Safety Report 8058181-7 (Version None)
Quarter: 2012Q1

REPORT INFORMATION
  Report Type: 
  Country: None (occurrence: None)
  Receive Date: 20120112
  Receipt Date: 20111228
  Transmission Date: 20120608
  Serious: Yes (Other)
  Sender: FDA-Public Use
  Company Number: ADR-2012-00041

PATIENT

DRUGS (1)
  1. BACLOFEN [Suspect]
     Indication: CEREBRAL PALSY

REACTIONS (1)
  - SCOLIOSIS [None]
